FAERS Safety Report 14829051 (Version 1)
Quarter: 2018Q2

REPORT INFORMATION
  Report Type: Report from Study
  Country: DE (occurrence: DE)
  Receive Date: 20180430
  Receipt Date: 20180430
  Transmission Date: 20180711
  Serious: Yes (Hospitalization)
  Sender: FDA-Public Use
  Company Number: DE-PFIZER INC-2018171647

PATIENT
  Age: 73 Year
  Sex: Female
  Weight: 60 kg

DRUGS (12)
  1. BEVACIZUMAB. [Suspect]
     Active Substance: BEVACIZUMAB
     Dosage: 844.5 MG, EVERY 3 WEEKS
     Route: 042
     Dates: start: 20140707, end: 20140707
  2. CARBOPLATIN. [Suspect]
     Active Substance: CARBOPLATIN
     Dosage: 464.8 MG, EVERY 3 WEEKS, DOSE ACCORDING TO PATIENT WEIGHT
     Route: 042
     Dates: start: 20140505, end: 20140505
  3. PACLITAXEL. [Suspect]
     Active Substance: PACLITAXEL
     Dosage: 274.75 MG, EVERY 3 WEEKS DOSE ACCORDING TO PATIENT WEIGHT
     Route: 042
     Dates: start: 20140707, end: 20140707
  4. PACLITAXEL. [Suspect]
     Active Substance: PACLITAXEL
     Dosage: 280 MG, EVERY 3 WEEKS DOSE ACCORDING TO PATIENT WEIGHT
     Route: 042
     Dates: start: 20140616, end: 20140616
  5. CARBOPLATIN. [Suspect]
     Active Substance: CARBOPLATIN
     Indication: OVARIAN CANCER
     Dosage: 500.55 MG, EVERY 3 WEEKS DOSE ACCORDING TO PATIENT WEIGHT
     Route: 042
     Dates: start: 20140414, end: 20140414
  6. CARBOPLATIN. [Suspect]
     Active Substance: CARBOPLATIN
     Dosage: 407.05 MG, EVERY 3 WEEKS DOSE ACCORDING TO PATIENT WEIGHT
     Route: 042
     Dates: start: 20140616, end: 20140616
  7. CARBOPLATIN. [Suspect]
     Active Substance: CARBOPLATIN
     Dosage: 369.95 MG, EVERY 3 WEEKS DOSE ACCORDING TO PATIENT WEIGHT
     Route: 042
     Dates: start: 20140707, end: 20140707
  8. PACLITAXEL. [Suspect]
     Active Substance: PACLITAXEL
     Dosage: 280 MG, EVERY 3 WEEKS DOSE ACCORDING TO PATIENT WEIGHT
     Route: 042
     Dates: start: 20140526, end: 20140526
  9. PACLITAXEL. [Suspect]
     Active Substance: PACLITAXEL
     Indication: OVARIAN CANCER
     Dosage: 283.5 MG, EVERY 3 WEEKS DOSE ACCORDING TO PATIENT WEIGHT.
     Route: 042
     Dates: start: 20140414, end: 20140414
  10. BEVACIZUMAB. [Suspect]
     Active Substance: BEVACIZUMAB
     Indication: OVARIAN CANCER
     Dosage: 900 MG, EVERY 3 WEEKS
     Route: 042
     Dates: start: 20140505, end: 20140505
  11. CARBOPLATIN. [Suspect]
     Active Substance: CARBOPLATIN
     Dosage: 433.85 MG, EVERY 3 WEEKS DOSE ACCORDING TO PATIENT WEIGHT
     Route: 042
     Dates: start: 20140526, end: 20140526
  12. PACLITAXEL. [Suspect]
     Active Substance: PACLITAXEL
     Dosage: 283.5 MG, EVERY 3 WEEKS DOSE ACCORDING TO PATIENT WEIGHT
     Route: 042
     Dates: start: 20140505, end: 20140505

REACTIONS (1)
  - Deep vein thrombosis [Recovering/Resolving]

NARRATIVE: CASE EVENT DATE: 20140804
